FAERS Safety Report 22110092 (Version 1)
Quarter: 2023Q1

REPORT INFORMATION
  Report Type: Spontaneous
  Country: US (occurrence: None)
  Receive Date: 20230317
  Receipt Date: 20230317
  Transmission Date: 20230417
  Serious: Yes (Other)
  Sender: FDA-Public Use
  Company Number: US-ROCHE-3306368

PATIENT
  Sex: Female

DRUGS (8)
  1. HERCEPTIN [Suspect]
     Active Substance: TRASTUZUMAB
     Indication: Product used for unknown indication
     Route: 065
  2. PERJETA [Suspect]
     Active Substance: PERTUZUMAB
     Indication: Product used for unknown indication
     Route: 065
  3. KADCYLA [Suspect]
     Active Substance: ADO-TRASTUZUMAB EMTANSINE
     Indication: Breast cancer
     Route: 065
  4. OXYMETAZOLINE [Concomitant]
     Active Substance: OXYMETAZOLINE
  5. TEMOZOLOMIDE [Concomitant]
     Active Substance: TEMOZOLOMIDE
  6. CALCIUM [Concomitant]
     Active Substance: CALCIUM
     Route: 048
  7. VITAMIN B6 [Concomitant]
     Active Substance: PYRIDOXINE HYDROCHLORIDE
     Route: 048
  8. ACETAMINOPHEN [Concomitant]
     Active Substance: ACETAMINOPHEN
     Route: 048

REACTIONS (12)
  - Headache [Unknown]
  - Central nervous system neoplasm [Unknown]
  - Pneumonitis [Unknown]
  - Streptococcal infection [Unknown]
  - Pulmonary function test decreased [Unknown]
  - Lung disorder [Unknown]
  - Hypokalaemia [Unknown]
  - Hypomagnesaemia [Unknown]
  - Lymphopenia [Unknown]
  - Neuropathy peripheral [Unknown]
  - Neuroma [Unknown]
  - Aphasia [Unknown]

NARRATIVE: CASE EVENT DATE: 20180901
